FAERS Safety Report 6286112-9 (Version None)
Quarter: 2009Q3

REPORT INFORMATION
  Report Type: 
  Country: None (occurrence: None)
  Receive Date: 20090728
  Receipt Date: 20090716
  Transmission Date: 20100115
  Serious: Yes (Other)
  Sender: FDA-Public Use
  Company Number: US-ROCHE-644390

PATIENT
  Age: 41 Year
  Sex: Male

DRUGS (3)
  1. TAMIFLU [Suspect]
     Indication: INFLUENZA
     Route: 048
     Dates: start: 20090610
  2. TAMIFLU [Suspect]
     Dosage: DOUBLE DOSE
     Route: 048
     Dates: start: 20090710
  3. AMPHOTERICIN B [Concomitant]
     Dosage: DRUG: AMBISONE

REACTIONS (3)
  - INCORRECT DOSE ADMINISTERED [None]
  - MENTAL STATUS CHANGES [None]
  - RENAL FAILURE ACUTE [None]
